FAERS Safety Report 24671772 (Version 1)
Quarter: 2024Q4

REPORT INFORMATION
  Report Type: Spontaneous
  Country: PT (occurrence: PT)
  Receive Date: 20241127
  Receipt Date: 20241127
  Transmission Date: 20250114
  Serious: Yes (Other)
  Sender: BAUSCH AND LOMB
  Company Number: PT-BAUSCH-BL-2024-017337

PATIENT
  Age: 18 Year
  Sex: Female

DRUGS (2)
  1. TETRABENAZINE [Suspect]
     Active Substance: TETRABENAZINE
     Indication: Tourette^s disorder
     Route: 065
  2. TETRABENAZINE [Suspect]
     Active Substance: TETRABENAZINE
     Dosage: 12.5 MG AT BREAKFAST, 12.5 MG AT LUNCH AND 25 MG LATER IN THE AFTERNOON
     Route: 065

REACTIONS (1)
  - Dystonia [Recovered/Resolved]
